FAERS Safety Report 6384529 (Version 3)
Quarter: 2012Q4

REPORT INFORMATION
  Report Type: 
  Country: BR (occurrence: BR)
  Receive Date: 20070816
  Receipt Date: 20120927
  Transmission Date: 20130627
  Serious: Yes (Hospitalization, Other)
  Sender: FDA-Public Use
  Company Number: PHBS2007BR13295

PATIENT
  Age: 66 None
  Sex: Male
  Weight: 90 kg

DRUGS (10)
  1. TEGRETOL CR [Suspect]
     Indication: CONVULSION
     Dosage: 2 DF, daily
     Route: 048
     Dates: start: 199610, end: 2009
  2. TEGRETOL CR [Suspect]
     Indication: NERVOUS SYSTEM DISORDER
  3. TEGRETOL [Suspect]
     Indication: CEREBRAL DISORDER
     Route: 048
  4. TEGRETOL [Suspect]
     Indication: EPILEPSY
  5. MAREVAN [Concomitant]
     Indication: HYPERCOAGULATION
     Dosage: 2 DF, daily
     Route: 048
  6. AAS [Concomitant]
     Indication: CARDIAC DISORDER
     Dosage: 1 DF (100 mg), daily
     Route: 048
     Dates: start: 2007
  7. SELOZOK [Concomitant]
     Indication: HEART RATE IRREGULAR
     Dosage: 1 DF (25 mg), daily in morning
     Route: 048
     Dates: start: 2007
  8. GEROVITAL [Concomitant]
     Dosage: 2 DF, daily
     Route: 048
  9. SIMVASTATIN [Concomitant]
     Indication: BLOOD CHOLESTEROL
     Dosage: 80 mg, QHS
     Route: 048
  10. CLOPIDOGREL BISULFATE [Concomitant]
     Indication: CARDIAC DISORDER
     Dosage: 1 DF (50 mg), daily
     Route: 048
     Dates: start: 2007

REACTIONS (19)
  - Infarction [Recovered/Resolved]
  - Wound infection [Recovered/Resolved]
  - Impaired healing [Recovered/Resolved]
  - Cerebrovascular accident [Recovered/Resolved]
  - Thrombosis [Recovered/Resolved]
  - Feeling abnormal [Recovered/Resolved]
  - Abnormal dreams [Recovered/Resolved]
  - Hallucination [Recovered/Resolved]
  - Erectile dysfunction [Recovered/Resolved]
  - Hypercoagulation [Recovered/Resolved]
  - Blood pressure increased [Recovered/Resolved]
  - Fistula [Recovered/Resolved]
  - Somnolence [Recovered/Resolved]
  - Alopecia [Recovered/Resolved]
  - Tendon disorder [Recovered/Resolved]
  - Skin exfoliation [Recovered/Resolved]
  - Vision blurred [Recovered/Resolved]
  - Loss of libido [Recovered/Resolved]
  - Diplopia [Recovered/Resolved]
